FAERS Safety Report 21796474 (Version 1)
Quarter: 2022Q4

REPORT INFORMATION
  Report Type: Spontaneous
  Country: US (occurrence: US)
  Receive Date: 20221229
  Receipt Date: 20221229
  Transmission Date: 20230112
  Serious: No
  Sender: FDA-Public Use
  Company Number: US-Emergent Biosolutions-22000340

PATIENT
  Age: 81 Year
  Sex: Male

DRUGS (1)
  1. NALOXONE HYDROCHLORIDE [Suspect]
     Active Substance: NALOXONE HYDROCHLORIDE
     Indication: Sinonasal obstruction
     Dosage: UNK
     Route: 065

REACTIONS (2)
  - Sneezing [Unknown]
  - Product use in unapproved indication [Unknown]
